FAERS Safety Report 4757730-1 (Version None)
Quarter: 2005Q3

REPORT INFORMATION
  Report Type: 
  Country: None (occurrence: None)
  Receive Date: 20050830
  Receipt Date: 20050816
  Transmission Date: 20060218
  Serious: Yes (Hospitalization)
  Sender: FDA-Public Use
  Company Number: MK200508-0249-1

PATIENT
  Age: 15 Day
  Sex: Female
  Weight: 0.4536 kg

DRUGS (3)
  1. OPTIRAY 300 [Suspect]
     Indication: CATHETER PLACEMENT
     Dosage: 0.5 ML, SINGLE USE, IV
     Route: 042
     Dates: start: 20031216, end: 20031216
  2. TELEBRIX [Suspect]
     Indication: CYSTOGRAM
     Dosage: 100 ML, SINGLE USE
     Dates: start: 20040227, end: 20040227
  3. L-THYROXIN [Concomitant]

REACTIONS (3)
  - CONTRAST MEDIA REACTION [None]
  - HYPOTHYROIDISM [None]
  - URINE ABNORMALITY [None]
